FAERS Safety Report 9101733 (Version 1)
Quarter: 2013Q1

REPORT INFORMATION
  Report Type: Spontaneous
  Country: US (occurrence: US)
  Receive Date: 20130218
  Receipt Date: 20130218
  Transmission Date: 20140127
  Serious: Yes (Hospitalization)
  Sender: FDA-Public Use
  Company Number: US-AMGEN-USASP2013009581

PATIENT
  Age: 62 Year
  Sex: Female

DRUGS (4)
  1. ENBREL [Suspect]
     Indication: RHEUMATOID ARTHRITIS
     Dosage: 50 MG, QWK
     Dates: start: 20031201
  2. ARAVA [Concomitant]
     Dosage: UNK
  3. IMURAN                             /00001501/ [Concomitant]
     Dosage: 150 MGM DAILY
  4. REMICADE [Concomitant]
     Dosage: UNK

REACTIONS (5)
  - Rheumatoid arthritis [Recovered/Resolved]
  - Arthralgia [Unknown]
  - Fall [Unknown]
  - Procedural pain [Not Recovered/Not Resolved]
  - Sciatica [Recovered/Resolved]
